FAERS Safety Report 5271467-4 (Version None)
Quarter: 2007Q1

REPORT INFORMATION
  Report Type: 
  Country: None (occurrence: None)
  Receive Date: 20070321
  Receipt Date: 20070316
  Transmission Date: 20070707
  Serious: Yes (Life-Threatening, Hospitalization)
  Sender: FDA-Public Use
  Company Number: JP-SHR-JP-2007-001412

PATIENT
  Age: 32 Year
  Sex: Female

DRUGS (12)
  1. BETASERON [Suspect]
     Indication: RELAPSING-REMITTING MULTIPLE SCLEROSIS
     Dosage: 4 MIU, EVERY 2D
     Route: 058
     Dates: start: 20051108, end: 20051110
  2. BETASERON [Suspect]
     Dosage: 8 MIU, EVERY 2D
     Route: 058
     Dates: start: 20051112, end: 20051118
  3. BETASERON [Suspect]
     Dosage: 8 MIU, UNK
     Route: 058
     Dates: start: 20051119, end: 20061015
  4. MEDROL [Concomitant]
     Indication: MULTIPLE SCLEROSIS
     Dosage: 4-12 MG, 1X/DAY
     Route: 048
     Dates: start: 20051108
  5. ZANTAC [Concomitant]
     Indication: GASTRITIS
     Dosage: 300 MG, 1X/DAY
     Route: 048
     Dates: start: 20051108
  6. POLLAKISU [Concomitant]
     Dosage: 6 MG, 1X/DAY
     Route: 048
     Dates: start: 20051108
  7. DEPAKENE [Concomitant]
     Indication: MULTIPLE SCLEROSIS
     Dosage: 100-1200 MG, 1X/DAY
     Route: 048
     Dates: start: 20051108
  8. LOXONIN [Concomitant]
     Indication: ARTHRALGIA
     Dosage: 60 MG, 1X/DAY
     Route: 048
     Dates: start: 20051205
  9. SELBEX [Concomitant]
     Dosage: 50 MG, 1X/DAY
     Route: 048
     Dates: start: 20051205
  10. CYANOCOBALAMIN [Concomitant]
     Indication: MULTIPLE SCLEROSIS
     Dosage: 1500 A?G, 1X/DAY
     Route: 048
     Dates: start: 20060309
  11. MOBIC [Concomitant]
     Indication: MULTIPLE SCLEROSIS
     Dosage: 10 MG, 1X/DAY
     Route: 048
     Dates: start: 20060704
  12. VOLTAREN [Concomitant]
     Indication: MULTIPLE SCLEROSIS
     Dosage: UNK, AS REQ'D
     Route: 061
     Dates: start: 20060727

REACTIONS (4)
  - NEUTROPHIL COUNT INCREASED [None]
  - SEPSIS [None]
  - URINARY TRACT INFECTION [None]
  - WHITE BLOOD CELL COUNT INCREASED [None]
